FAERS Safety Report 9746506 (Version 2)
Quarter: 2013Q4

REPORT INFORMATION
  Report Type: Spontaneous
  Country: FR (occurrence: FR)
  Receive Date: 20131211
  Receipt Date: 20131217
  Transmission Date: 20140711
  Serious: Yes (Hospitalization)
  Sender: FDA-Public Use
  Company Number: FR-UCBSA-105076

PATIENT
  Sex: Female

DRUGS (2)
  1. CIMZIA [Suspect]
     Route: 058
     Dates: start: 2013
  2. NO CONCOMITANT MEDICATION [Concomitant]

REACTIONS (5)
  - Drug hypersensitivity [Unknown]
  - Tongue oedema [Recovered/Resolved]
  - Rash [Recovered/Resolved]
  - Cough [Recovered/Resolved]
  - Injection site erythema [Recovered/Resolved]
